FAERS Safety Report 6896807-1 (Version None)
Quarter: 2010Q3

REPORT INFORMATION
  Report Type: 
  Country: None (occurrence: None)
  Receive Date: 20100802
  Receipt Date: 20070222
  Transmission Date: 20110219
  Serious: No
  Sender: FDA-Public Use
  Company Number: US-PFIZER INC-2006129261

PATIENT
  Age: 68 Year
  Sex: Female
  Weight: 95.3 kg

DRUGS (1)
  1. LYRICA [Suspect]
     Indication: NEURALGIA
     Route: 048
     Dates: start: 20060301

REACTIONS (2)
  - APHASIA [None]
  - SPEECH DISORDER [None]
